FAERS Safety Report 12151976 (Version 1)
Quarter: 2016Q1

REPORT INFORMATION
  Report Type: Report from Study
  Country: US (occurrence: US)
  Receive Date: 20160304
  Receipt Date: 20160304
  Transmission Date: 20160526
  Serious: No
  Sender: FDA-Public Use
  Company Number: US-AMGEN-USASL2015089823

PATIENT

DRUGS (1)
  1. SENSIPAR [Suspect]
     Active Substance: CINACALCET HYDROCHLORIDE
     Indication: PRODUCT USED FOR UNKNOWN INDICATION
     Dosage: ONE 90 MG TABLET + TWO 30 MG TABLETS DAILY (150 MG TOTAL)QD
     Route: 048

REACTIONS (4)
  - Dizziness [Unknown]
  - Faeces discoloured [Unknown]
  - Diarrhoea [Unknown]
  - Syncope [Unknown]

NARRATIVE: CASE EVENT DATE: 20150808
